FAERS Safety Report 11090988 (Version 1)
Quarter: 2015Q2

REPORT INFORMATION
  Report Type: Spontaneous
  Country: US (occurrence: None)
  Receive Date: 20150504
  Receipt Date: 20150504
  Transmission Date: 20150821
  Serious: Yes (Disabling)
  Sender: FDA-Public Use
  Company Number: None

PATIENT
  Age: 34 Year
  Sex: Female
  Weight: 50.8 kg

DRUGS (11)
  1. CIPROFLOXACIN 250 MG [Suspect]
     Active Substance: CIPROFLOXACIN
     Indication: URINARY TRACT INFECTION
     Dosage: 2 PILL
     Route: 048
     Dates: start: 20150322, end: 20150324
  2. REFRESH EYE DROPS [Concomitant]
  3. OMEGA 3 [Concomitant]
     Active Substance: OMEGA-3 FATTY ACIDS
  4. OINTMENT [Concomitant]
     Active Substance: UNSPECIFIED INGREDIENT
  5. VITAMIN D [Concomitant]
     Active Substance: CHOLECALCIFEROL
  6. COQ10 [Concomitant]
     Active Substance: UBIDECARENONE
  7. NAC [Concomitant]
  8. EPSOM SALT BATHS DAILY [Concomitant]
  9. PROBIOTICS [Concomitant]
     Active Substance: PROBIOTICS NOS
  10. VITAMIN B12 [Concomitant]
     Active Substance: CYANOCOBALAMIN
  11. MAGNESIUM [Concomitant]
     Active Substance: MAGNESIUM

REACTIONS (13)
  - Arthralgia [None]
  - Nausea [None]
  - Hypoaesthesia [None]
  - Corneal erosion [None]
  - Back pain [None]
  - Dry mouth [None]
  - Paraesthesia [None]
  - Anxiety [None]
  - Dry eye [None]
  - Food intolerance [None]
  - Gastric disorder [None]
  - Malaise [None]
  - Limb discomfort [None]

NARRATIVE: CASE EVENT DATE: 20150322
